FAERS Safety Report 19467353 (Version 1)
Quarter: 2021Q2

REPORT INFORMATION
  Report Type: Spontaneous
  Country: US (occurrence: US)
  Receive Date: 20210626
  Receipt Date: 20210626
  Transmission Date: 20210717
  Serious: No
  Sender: FDA-Public Use
  Company Number: None

PATIENT
  Age: 45 Year
  Sex: Female

DRUGS (6)
  1. VITAMIN C [Concomitant]
     Active Substance: ASCORBIC ACID
  2. MULTIVITAMINS [Concomitant]
     Active Substance: VITAMINS
  3. PRILOSEC OTC [Suspect]
     Active Substance: OMEPRAZOLE MAGNESIUM
     Indication: GASTROOESOPHAGEAL REFLUX DISEASE
     Dosage: ?          QUANTITY:1 CAPSULE(S);?
     Route: 048
     Dates: start: 20210624, end: 20210626
  4. VITAMIN D [Concomitant]
     Active Substance: VITAMIN D NOS
  5. CHOLESTEROFF [Concomitant]
  6. CALCIUM [Concomitant]
     Active Substance: CALCIUM

REACTIONS (5)
  - Fatigue [None]
  - Arthralgia [None]
  - Headache [None]
  - Abdominal pain upper [None]
  - Loss of consciousness [None]

NARRATIVE: CASE EVENT DATE: 20210625
